FAERS Safety Report 25919799 (Version 1)
Quarter: 2025Q4

REPORT INFORMATION
  Report Type: Report from Study
  Country: CA (occurrence: CA)
  Receive Date: 20251014
  Receipt Date: 20251014
  Transmission Date: 20260119
  Serious: Yes (Other)
  Sender: ABBVIE
  Company Number: CA-ABBVIE-6500168

PATIENT
  Age: 64 Year
  Sex: Male
  Weight: 65.7 kg

DRUGS (1)
  1. SKYRIZI [Suspect]
     Active Substance: RISANKIZUMAB-RZAA
     Indication: Crohn^s disease
     Dosage: LDD: SEP 2025
     Route: 058
     Dates: start: 20230228

REACTIONS (11)
  - Intestinal resection [Unknown]
  - Eye disorder [Unknown]
  - Eye oedema [Unknown]
  - Visual impairment [Unknown]
  - Tinnitus [Unknown]
  - Gastrointestinal disorder [Unknown]
  - Sleep disorder [Unknown]
  - Pain in extremity [Unknown]
  - Abdominal pain [Unknown]
  - Flatulence [Unknown]
  - Scar [Unknown]

NARRATIVE: CASE EVENT DATE: 20241029
